FAERS Safety Report 8062716-8 (Version None)
Quarter: 2012Q1

REPORT INFORMATION
  Report Type: 
  Country: None (occurrence: None)
  Receive Date: 20120123
  Receipt Date: 20120112
  Transmission Date: 20120608
  Serious: Yes (Hospitalization)
  Sender: FDA-Public Use
  Company Number: LB-NOVOPROD-343010

PATIENT
  Age: 14 Year
  Sex: Male
  Weight: 26 kg

DRUGS (1)
  1. NORDITROPIN [Suspect]
     Indication: GROWTH HORMONE DEFICIENCY
     Dosage: 1.05 MG, QD
     Route: 065
     Dates: start: 20090716, end: 20100309

REACTIONS (1)
  - OSTEITIS [None]
